FAERS Safety Report 24310503 (Version 1)
Quarter: 2024Q3

REPORT INFORMATION
  Report Type: Report from Study
  Country: CA (occurrence: CA)
  Receive Date: 20240912
  Receipt Date: 20240912
  Transmission Date: 20241017
  Serious: Yes (Hospitalization)
  Sender: ABBVIE
  Company Number: CA-ABBVIE-5914448

PATIENT
  Sex: Female

DRUGS (2)
  1. RINVOQ [Suspect]
     Active Substance: UPADACITINIB
     Indication: Rheumatoid arthritis
     Route: 048
     Dates: start: 20211203
  2. AMOXICILLIN\CLAVULANATE POTASSIUM [Suspect]
     Active Substance: AMOXICILLIN\CLAVULANATE POTASSIUM
     Indication: Product used for unknown indication
     Dosage: FORM STRENGTH: 875/125 MILLIGRAM
     Route: 065
     Dates: start: 20240903

REACTIONS (4)
  - Animal bite [Recovered/Resolved]
  - Pruritus [Unknown]
  - Diarrhoea [Unknown]
  - Wound complication [Recovered/Resolved]

NARRATIVE: CASE EVENT DATE: 20240901
